FAERS Safety Report 25013274 (Version 1)
Quarter: 2025Q1

REPORT INFORMATION
  Report Type: Spontaneous
  Country: US (occurrence: None)
  Receive Date: 20250225
  Receipt Date: 20250225
  Transmission Date: 20250409
  Serious: Yes (Disabling)
  Sender: FDA-CTU
  Company Number: None

PATIENT
  Age: 44 Year
  Sex: Female
  Weight: 67.5 kg

DRUGS (7)
  1. VTAMA [Suspect]
     Active Substance: TAPINAROF
     Indication: Rash
     Dosage: OTHER QUANTITY : 1 DAB;?FREQUENCY : DAILY;?
     Route: 061
     Dates: start: 20250212, end: 20250224
  2. WELLBUTRIN [Concomitant]
     Active Substance: BUPROPION HYDROCHLORIDE
  3. B12 [Concomitant]
  4. ESTRADIOL [Concomitant]
     Active Substance: ESTRADIOL
  5. D [Concomitant]
  6. ZINC [Concomitant]
     Active Substance: ZINC
  7. roasted dandelion root [Concomitant]

REACTIONS (6)
  - Upper respiratory tract infection [None]
  - Lower respiratory tract infection [None]
  - Application site pruritus [None]
  - Female orgasmic disorder [None]
  - Thunderclap headache [None]
  - Headache [None]

NARRATIVE: CASE EVENT DATE: 20250222
